FAERS Safety Report 16308819 (Version 2)
Quarter: 2019Q2

REPORT INFORMATION
  Report Type: Spontaneous
  Country: US (occurrence: US)
  Receive Date: 20190514
  Receipt Date: 20190515
  Transmission Date: 20190711
  Serious: No
  Sender: FDA-Public Use
  Company Number: US-PFIZER INC-2019196432

PATIENT
  Age: 73 Year
  Sex: Female
  Weight: 53.61 kg

DRUGS (2)
  1. LYRICA [Suspect]
     Active Substance: PREGABALIN
     Dosage: 100 MG, DAILY
     Dates: start: 20190507
  2. LYRICA [Suspect]
     Active Substance: PREGABALIN
     Dosage: 100 MG, 3X/DAY
     Dates: start: 20190504, end: 20190506

REACTIONS (5)
  - Vision blurred [Not Recovered/Not Resolved]
  - Feeling abnormal [Unknown]
  - Weight increased [Not Recovered/Not Resolved]
  - Intentional product use issue [Unknown]
  - Impaired driving ability [Unknown]

NARRATIVE: CASE EVENT DATE: 201905
